FAERS Safety Report 4878132-3 (Version None)
Quarter: 2006Q1

REPORT INFORMATION
  Report Type: 
  Country: None (occurrence: None)
  Receive Date: 20060111
  Receipt Date: 20051019
  Transmission Date: 20060701
  Serious: Yes (Other)
  Sender: FDA-Public Use
  Company Number: 200518318US

PATIENT
  Sex: Male

DRUGS (21)
  1. LANTUS [Suspect]
     Indication: DIABETES MELLITUS NON-INSULIN-DEPENDENT
     Dosage: DOSE: 37-42; DOSE UNIT: UNITS
     Route: 051
     Dates: start: 20050401
  2. OPTICLIK (INSULIN INJECTION PEN) [Suspect]
     Indication: DIABETES MELLITUS NON-INSULIN-DEPENDENT
  3. GLUCOPHAGE [Concomitant]
     Dosage: DOSE: UNKNOWN
  4. FUROSEMIDE [Concomitant]
  5. LISINOPRIL [Concomitant]
  6. ASPIRIN [Concomitant]
     Route: 048
  7. MULTIVITAMINS, PLAIN [Concomitant]
     Dosage: DOSE: UNKNOWN
  8. LITHIUM [Concomitant]
  9. NEURONTIN [Concomitant]
  10. TRICOR [Concomitant]
  11. LIPITOR [Concomitant]
     Dosage: DOSE: UNKNOWN
  12. VERAPAMIL [Concomitant]
  13. SINGULAIR [Concomitant]
  14. TRAZODONE [Concomitant]
  15. OPHTHALMOLOGICALS [Concomitant]
     Dosage: DOSE: UNKNOWN
  16. POTASSIUM [Concomitant]
     Dosage: DOSE: UNKNOWN
  17. ALBUTEROL [Concomitant]
     Dosage: DOSE: 2 PUFFS
  18. ADVAIR DISKUS 250/50 [Concomitant]
     Dosage: DOSE: 1 PUFF
  19. GLUCOSE TABLETS [Concomitant]
     Dosage: DOSE: UNKNOWN
  20. AVANDIA [Concomitant]
  21. GLIPIZIDE [Concomitant]

REACTIONS (5)
  - ANXIETY [None]
  - BLOOD GLUCOSE INCREASED [None]
  - DEPRESSION [None]
  - SOMNOLENCE [None]
  - WEIGHT INCREASED [None]
